FAERS Safety Report 5824307-6 (Version None)
Quarter: 2008Q3

REPORT INFORMATION
  Report Type: 
  Country: None (occurrence: None)
  Receive Date: 20080722
  Receipt Date: 20080709
  Transmission Date: 20090109
  Serious: Yes (Other)
  Sender: FDA-Public Use
  Company Number: S08-FRA-01538-01

PATIENT
  Age: 16 Year
  Sex: Female
  Weight: 44 kg

DRUGS (5)
  1. ESCITALOPRAM OXALATE [Suspect]
     Indication: PANIC DISORDER
     Dosage: 10 MG (10 MG,  1 IN 1 D), ORAL; ORAL
     Route: 048
     Dates: start: 20080201, end: 20080219
  2. ESCITALOPRAM OXALATE [Suspect]
     Indication: PANIC DISORDER
     Dosage: 10 MG (10 MG,  1 IN 1 D), ORAL; ORAL
     Route: 048
     Dates: start: 20080220
  3. XANAX (ALPRAZOLAM) (ALPRAZOLAM) [Concomitant]
  4. ATARAX [Concomitant]
  5. TERCIAN (DROPS) [Concomitant]

REACTIONS (2)
  - BLADDER DISTENSION [None]
  - URINARY RETENTION [None]
